FAERS Safety Report 10162465 (Version 1)
Quarter: 2014Q2

REPORT INFORMATION
  Report Type: Spontaneous
  Country: FR (occurrence: FR)
  Receive Date: 20140509
  Receipt Date: 20140509
  Transmission Date: 20141212
  Serious: Yes (Other)
  Sender: FDA-Public Use
  Company Number: FR-INCYTE CORPORATION-2014IN001151

PATIENT
  Sex: Male

DRUGS (3)
  1. JAKAVI [Suspect]
     Indication: MYELOFIBROSIS
     Dosage: 5 MG, BID
     Route: 048
     Dates: start: 201306
  2. JAKAVI [Suspect]
     Dosage: 20 MG, QD
     Route: 048
  3. EXJADE [Concomitant]

REACTIONS (3)
  - Basal cell carcinoma [Unknown]
  - Squamous cell carcinoma [Unknown]
  - Second primary malignancy [Unknown]
